FAERS Safety Report 10446067 (Version 2)
Quarter: 2014Q3

REPORT INFORMATION
  Report Type: Spontaneous
  Country: IT (occurrence: IT)
  Receive Date: 20140910
  Receipt Date: 20140917
  Transmission Date: 20150326
  Serious: Yes (Other)
  Sender: FDA-Public Use
  Company Number: IT-ABBVIE-14P-083-1282354-00

PATIENT
  Age: 67 Year
  Sex: Male

DRUGS (1)
  1. VALPROIC ACID. [Suspect]
     Active Substance: VALPROIC ACID
     Indication: PRODUCT USED FOR UNKNOWN INDICATION
     Route: 065

REACTIONS (10)
  - Drug reaction with eosinophilia and systemic symptoms [Unknown]
  - Perivascular dermatitis [Unknown]
  - Erythema [Unknown]
  - Lymphadenopathy [Unknown]
  - Eczema [Unknown]
  - Epidermal necrosis [Unknown]
  - Hepatic function abnormal [Unknown]
  - Urticaria [Unknown]
  - Eosinophilia [Unknown]
  - Rash macular [Unknown]
